FAERS Safety Report 7067998-7 (Version None)
Quarter: 2010Q4

REPORT INFORMATION
  Report Type: 
  Country: None (occurrence: None)
  Receive Date: 20101020
  Receipt Date: 20101013
  Transmission Date: 20110411
  Serious: Yes (Disabling)
  Sender: FDA-Public Use
  Company Number: 2010SP054354

PATIENT
  Age: 26 Year
  Sex: Male

DRUGS (2)
  1. DESLORATADINE [Suspect]
     Indication: RHINITIS ALLERGIC
     Dosage: 5 MG
     Dates: start: 20100101, end: 20100101
  2. NASONEX [Suspect]
     Indication: RHINITIS ALLERGIC
     Dates: start: 20100101, end: 20100101

REACTIONS (3)
  - ACTIVITIES OF DAILY LIVING IMPAIRED [None]
  - ERYTHEMA [None]
  - URTICARIA [None]
